FAERS Safety Report 7810711-3 (Version None)
Quarter: 2011Q4

REPORT INFORMATION
  Report Type: 
  Country: None (occurrence: None)
  Receive Date: 20111013
  Receipt Date: 20110930
  Transmission Date: 20120403
  Serious: Yes (Hospitalization, Other)
  Sender: FDA-Public Use
  Company Number: CH-PAR PHARMACEUTICAL, INC-2011SCPR003219

PATIENT

DRUGS (15)
  1. SITAGLIPTIN [Concomitant]
     Indication: PRODUCT USED FOR UNKNOWN INDICATION
     Dosage: 100 MG/D
     Route: 065
  2. TORSEMIDE [Concomitant]
     Indication: PRODUCT USED FOR UNKNOWN INDICATION
     Dosage: 30 MG/D
     Route: 065
  3. ADALIMUMAB [Suspect]
     Indication: PRODUCT USED FOR UNKNOWN INDICATION
     Dosage: 40 MG, EVERY TWO WEEKS
     Route: 065
  4. ACETYLSALICYLIC ACID [Concomitant]
     Indication: PRODUCT USED FOR UNKNOWN INDICATION
     Dosage: 100 MG/D
     Route: 065
  5. METFORMIN HYDROCHLORIDE [Concomitant]
     Indication: TYPE 2 DIABETES MELLITUS
     Dosage: 100 MG/D
     Route: 065
  6. PREDNISONE [Concomitant]
     Indication: SERONEGATIVE ARTHRITIS
     Dosage: 5 MG/D
     Route: 065
  7. ATORVASTATIN [Concomitant]
     Indication: PRODUCT USED FOR UNKNOWN INDICATION
     Dosage: 20 MG/D
     Route: 065
  8. ACETYLCYSTEINE [Concomitant]
     Indication: PRODUCT USED FOR UNKNOWN INDICATION
     Dosage: 600 MG AS PER REQUIREMENT
     Route: 065
  9. LOSARTAN POTASSIUM [Concomitant]
     Indication: PRODUCT USED FOR UNKNOWN INDICATION
     Dosage: 100 MG/D
     Route: 065
  10. MEFENAMIC ACID [Suspect]
     Indication: PRODUCT USED FOR UNKNOWN INDICATION
     Dosage: 500 MG/D
     Route: 065
  11. LEVOTHYROXINE SODIUM [Concomitant]
     Indication: HYPOTHYROIDISM
     Dosage: 75 MG/D
     Route: 065
  12. PANTOPRAZOLE [Concomitant]
     Indication: PRODUCT USED FOR UNKNOWN INDICATION
     Dosage: 40 MG/D
     Route: 065
  13. IBUPROFEN [Suspect]
     Indication: PRODUCT USED FOR UNKNOWN INDICATION
     Dosage: 800 MG/D
     Route: 065
  14. METHOTREXATE [Suspect]
     Indication: SERONEGATIVE ARTHRITIS
     Dosage: 10 MG WEEKLY
     Route: 058
  15. METOPROLOL TARTRATE [Concomitant]
     Indication: PRODUCT USED FOR UNKNOWN INDICATION
     Dosage: 50 MG/D
     Route: 065

REACTIONS (14)
  - MOUTH ULCERATION [None]
  - CHEILITIS [None]
  - STOMATITIS [None]
  - BONE MARROW DISORDER [None]
  - ACUTE PRERENAL FAILURE [None]
  - PANCYTOPENIA [None]
  - ATRIAL FIBRILLATION [None]
  - BRONCHOPULMONARY ASPERGILLOSIS [None]
  - BACK PAIN [None]
  - EPISTAXIS [None]
  - ODYNOPHAGIA [None]
  - PAROXYSMAL NOCTURNAL HAEMOGLOBINURIA [None]
  - RENAL FAILURE ACUTE [None]
  - OSTEOMYELITIS ACUTE [None]
